FAERS Safety Report 9495461 (Version 2)
Quarter: 2013Q4

REPORT INFORMATION
  Report Type: Report from Study
  Country: US (occurrence: US)
  Receive Date: 20130903
  Receipt Date: 20131112
  Transmission Date: 20140711
  Serious: Yes (Hospitalization)
  Sender: FDA-Public Use
  Company Number: US-JNJFOC-20130816111

PATIENT
  Age: 54 Year
  Sex: Female
  Weight: 80.29 kg

DRUGS (14)
  1. REMICADE [Suspect]
     Indication: RHEUMATOID ARTHRITIS
     Route: 042
     Dates: start: 20130910
  2. REMICADE [Suspect]
     Indication: RHEUMATOID ARTHRITIS
     Route: 042
     Dates: start: 201105
  3. ULTRAM [Concomitant]
     Dosage: 1 OR 2
     Route: 048
  4. VITAMIN D3 [Concomitant]
     Route: 048
  5. VITAMIN B-12 [Concomitant]
     Route: 048
  6. FOLIC ACID [Concomitant]
     Route: 048
  7. HYDROXYCHLOROQUINE [Concomitant]
     Route: 048
  8. METHOTREXATE SODIUM [Concomitant]
     Route: 048
  9. BYSTOLIC [Concomitant]
     Route: 048
  10. POTASSIUM CHLORIDE [Concomitant]
     Route: 048
  11. LYRICA [Concomitant]
     Dosage: 1 OR 2 AT BED TIME AS NEEDED
     Route: 048
  12. VITAMIN E (TOCOPHERYL ACETATE) [Concomitant]
     Route: 048
  13. AMBIEN [Concomitant]
     Route: 048
  14. FAMOTIDINE [Concomitant]
     Route: 048

REACTIONS (1)
  - Intervertebral disc degeneration [Recovering/Resolving]
